FAERS Safety Report 10396250 (Version 2)
Quarter: 2014Q3

REPORT INFORMATION
  Report Type: Spontaneous
  Country: DE (occurrence: DE)
  Receive Date: 20140820
  Receipt Date: 20140822
  Transmission Date: 20150326
  Serious: Yes (Other)
  Sender: FDA-Public Use
  Company Number: GXKR2014DE002936

PATIENT
  Sex: Male
  Weight: 105 kg

DRUGS (4)
  1. TRUSOPT S [Concomitant]
     Indication: GLAUCOMA
     Dosage: 1 GTT, BID
  2. ATACAND PLUS [Concomitant]
     Active Substance: CANDESARTAN CILEXETIL\HYDROCHLOROTHIAZIDE
     Indication: HYPERTENSION
     Dosage: 1 DF, QD
     Route: 048
  3. DOXYCYLIN 1A PHARMA [Suspect]
     Active Substance: DOXYCYCLINE
     Indication: BORRELIA INFECTION
     Dosage: 100 MG, BID
     Route: 048
     Dates: start: 20140618, end: 20140709
  4. TAFLOTAN SINE [Concomitant]
     Indication: GLAUCOMA
     Dosage: 1 GTT, QD
     Route: 047

REACTIONS (1)
  - Glaucoma [Recovered/Resolved]
